FAERS Safety Report 14361885 (Version 1)
Quarter: 2018Q1

REPORT INFORMATION
  Report Type: Spontaneous
  Country: CZ (occurrence: CZ)
  Receive Date: 20180108
  Receipt Date: 20180108
  Transmission Date: 20180509
  Serious: Yes (Other)
  Sender: FDA-Public Use
  Company Number: CZ-ABBVIE-18P-217-2212204-00

PATIENT
  Age: 5 Year
  Sex: Female

DRUGS (3)
  1. TOPAMAX [Suspect]
     Active Substance: TOPIRAMATE
     Indication: PRODUCT USED FOR UNKNOWN INDICATION
     Dosage: EVERY 12 HOURS
     Route: 065
  2. DEPAKINE [Suspect]
     Active Substance: VALPROATE SODIUM
     Indication: PRODUCT USED FOR UNKNOWN INDICATION
     Dosage: EVERY 8 HOURS
     Route: 065
  3. KEPPRA [Suspect]
     Active Substance: LEVETIRACETAM
     Indication: PRODUCT USED FOR UNKNOWN INDICATION
     Dosage: EVERY 12 HOURS
     Route: 065

REACTIONS (4)
  - Haematocrit decreased [Unknown]
  - Drug level increased [Unknown]
  - Red blood cell count decreased [Unknown]
  - Attention deficit/hyperactivity disorder [Unknown]

NARRATIVE: CASE EVENT DATE: 201606
